FAERS Safety Report 4418277-5 (Version None)
Quarter: 2004Q3

REPORT INFORMATION
  Report Type: 
  Country: None (occurrence: None)
  Receive Date: 20040809
  Receipt Date: 20040128
  Transmission Date: 20050211
  Serious: No
  Sender: FDA-Public Use
  Company Number: US-GLAXOSMITHKLINE-A0495361A

PATIENT
  Age: 47 Year
  Sex: Male

DRUGS (3)
  1. PAXIL CR [Suspect]
     Indication: OBSESSIVE-COMPULSIVE DISORDER
     Dosage: 1TAB PER DAY
     Route: 048
     Dates: end: 20040127
  2. HIV TREATMENTS (UNSPECIFIED) [Concomitant]
  3. BLOOD PRESSURE MEDICATION [Concomitant]

REACTIONS (5)
  - DIZZINESS [None]
  - DRUG WITHDRAWAL SYNDROME [None]
  - HEADACHE [None]
  - INSOMNIA [None]
  - NAUSEA [None]
